FAERS Safety Report 24111454 (Version 1)
Quarter: 2024Q3

REPORT INFORMATION
  Report Type: Report from Study
  Country: US (occurrence: None)
  Receive Date: 20240718
  Receipt Date: 20240718
  Transmission Date: 20241017
  Serious: Yes (Other)
  Sender: ASTRAZENECA
  Company Number: 2020SE62995

PATIENT
  Sex: Female
  Weight: 59 kg

DRUGS (2)
  1. XIGDUO XR [Suspect]
     Active Substance: DAPAGLIFLOZIN PROPANEDIOL\METFORMIN HYDROCHLORIDE
     Indication: Type 2 diabetes mellitus
     Dosage: 5/1000MG
     Route: 048
  2. XIGDUO XR [Suspect]
     Active Substance: DAPAGLIFLOZIN PROPANEDIOL\METFORMIN HYDROCHLORIDE
     Indication: Glycosylated haemoglobin
     Dosage: 5/1000MG
     Route: 048

REACTIONS (4)
  - Splenic haemorrhage [Unknown]
  - Splenic lesion [Unknown]
  - Immune system disorder [Unknown]
  - Product dose omission issue [Unknown]
